FAERS Safety Report 7106007-8 (Version None)
Quarter: 2010Q4

REPORT INFORMATION
  Report Type: 
  Country: None (occurrence: None)
  Receive Date: 20101116
  Receipt Date: 20101105
  Transmission Date: 20110411
  Serious: Yes (Other)
  Sender: FDA-Public Use
  Company Number: GB-JNJFOC-20100800091

PATIENT
  Sex: Male

DRUGS (5)
  1. REMICADE [Suspect]
     Indication: CROHN'S DISEASE
     Route: 042
  2. REMICADE [Suspect]
     Dosage: LOADING DOSE
     Route: 042
  3. AZATHIOPRINE [Concomitant]
  4. PENTASA [Concomitant]
  5. OMEPRAZOLE [Concomitant]

REACTIONS (4)
  - ABNORMAL BEHAVIOUR [None]
  - FATIGUE [None]
  - LIBIDO DECREASED [None]
  - MEMORY IMPAIRMENT [None]
